FAERS Safety Report 9949839 (Version 1)
Quarter: 2014Q1

REPORT INFORMATION
  Report Type: Report from Study
  Country: US (occurrence: US)
  Receive Date: 20140304
  Receipt Date: 20140304
  Transmission Date: 20141002
  Serious: No
  Sender: FDA-Public Use
  Company Number: US-ABBVIE-13P-163-1067242-00

PATIENT
  Age: 34 Year
  Sex: Female
  Weight: 63.56 kg

DRUGS (3)
  1. HUMIRA [Suspect]
     Indication: ANKYLOSING SPONDYLITIS
     Route: 058
     Dates: start: 201211
  2. ALEVE [Concomitant]
     Indication: ANKYLOSING SPONDYLITIS
  3. NUVA RING [Concomitant]
     Indication: CONTRACEPTION

REACTIONS (4)
  - Weight increased [Not Recovered/Not Resolved]
  - Joint swelling [Not Recovered/Not Resolved]
  - Erythema [Not Recovered/Not Resolved]
  - Chest pain [Not Recovered/Not Resolved]
